FAERS Safety Report 8216506-3 (Version None)
Quarter: 2012Q1

REPORT INFORMATION
  Report Type: 
  Country: None (occurrence: None)
  Receive Date: 20120316
  Receipt Date: 20120306
  Transmission Date: 20120608
  Serious: Yes (Hospitalization)
  Sender: FDA-Public Use
  Company Number: IL-PERRIGO-12IL002098

PATIENT
  Age: 10 Year
  Sex: Female
  Weight: 38 kg

DRUGS (3)
  1. NAPROXEN SODIUM [Suspect]
     Dosage: 250 MG, TID
     Route: 048
  2. NAPROXEN SODIUM [Suspect]
     Indication: JUVENILE ARTHRITIS
     Dosage: 250 MG, BID
     Route: 048
  3. DICLOFENAC SODIUM [Concomitant]
     Indication: JUVENILE ARTHRITIS
     Dosage: 25 MG, TID
     Route: 065

REACTIONS (10)
  - OLIGURIA [None]
  - RENAL FAILURE [None]
  - PYREXIA [None]
  - TUBULOINTERSTITIAL NEPHRITIS [None]
  - MALAISE [None]
  - ANAEMIA [None]
  - RENAL TUBULAR NECROSIS [None]
  - DECREASED APPETITE [None]
  - PALLOR [None]
  - ARTHRALGIA [None]
